FAERS Safety Report 11230013 (Version 3)
Quarter: 2015Q4

REPORT INFORMATION
  Report Type: Spontaneous
  Country: US (occurrence: US)
  Receive Date: 20150701
  Receipt Date: 20151012
  Transmission Date: 20160304
  Serious: Yes (Disabling, Other)
  Sender: FDA-Public Use
  Company Number: US-UCBSA-2015021214

PATIENT
  Age: 37 Year
  Sex: Male
  Weight: 95 kg

DRUGS (3)
  1. CIMZIA [Suspect]
     Active Substance: CERTOLIZUMAB PEGOL
     Indication: CROHN^S DISEASE
     Dosage: 400 MG, MONTHLY (QM)
     Dates: start: 20101028, end: 20150815
  2. AZATHIOPRINE. [Concomitant]
     Active Substance: AZATHIOPRINE
     Indication: MUSCLE SPASMS
     Dosage: ONE AND HALF, 50 MG DAILY
     Route: 048
     Dates: start: 20150701
  3. PREDNISONE. [Concomitant]
     Active Substance: PREDNISONE
     Indication: BLISTER
     Dosage: 50-70 MG, 5 TO 2 10 MG DAILY
     Route: 048
     Dates: start: 20140501, end: 20150815

REACTIONS (6)
  - Muscle spasms [Recovered/Resolved]
  - Blister [Recovered/Resolved]
  - Staphylococcal infection [Not Recovered/Not Resolved]
  - Injection site haemorrhage [Recovering/Resolving]
  - Rehabilitation therapy [Recovering/Resolving]
  - Crohn^s disease [Not Recovered/Not Resolved]

NARRATIVE: CASE EVENT DATE: 2012
